FAERS Safety Report 22622444 (Version 1)
Quarter: 2023Q2

REPORT INFORMATION
  Report Type: Spontaneous
  Country: US (occurrence: US)
  Receive Date: 20230621
  Receipt Date: 20230621
  Transmission Date: 20230721
  Serious: Yes (Other)
  Sender: FDA-Public Use
  Company Number: US-STRIDES ARCOLAB LIMITED-2023SP004515

PATIENT
  Age: 57 Year
  Sex: Female

DRUGS (5)
  1. MYCOPHENOLATE MOFETIL [Suspect]
     Active Substance: MYCOPHENOLATE MOFETIL
     Indication: Pityriasis
     Dosage: UNK
     Route: 065
  2. TRIAMCINOLONE ACETONIDE [Suspect]
     Active Substance: TRIAMCINOLONE ACETONIDE
     Indication: Pityriasis
     Dosage: UNK
     Route: 065
  3. APREMILAST [Suspect]
     Active Substance: APREMILAST
     Indication: Pityriasis
     Dosage: UNK
     Route: 065
  4. ADALIMUMAB [Suspect]
     Active Substance: ADALIMUMAB
     Indication: Pityriasis
     Dosage: UNK
     Route: 065
  5. SALICYLIC ACID [Suspect]
     Active Substance: SALICYLIC ACID
     Indication: Pityriasis
     Dosage: UNK (SHAMPOO)
     Route: 065

REACTIONS (3)
  - Drug ineffective [Unknown]
  - Therapy partial responder [Unknown]
  - Off label use [Unknown]
